FAERS Safety Report 13443108 (Version 1)
Quarter: 2017Q2

REPORT INFORMATION
  Report Type: Spontaneous
  Country: AT (occurrence: AT)
  Receive Date: 20170414
  Receipt Date: 20170414
  Transmission Date: 20170830
  Serious: Yes (Life-Threatening)
  Sender: FDA-Public Use
  Company Number: AT-WEST-WARD PHARMACEUTICALS CORP.-AT-H14001-17-01121

PATIENT
  Sex: Female
  Weight: 97 kg

DRUGS (15)
  1. VANCOMYCIN HIKMA [Suspect]
     Active Substance: VANCOMYCIN
     Indication: C-REACTIVE PROTEIN INCREASED
  2. NEURONTIN [Concomitant]
     Active Substance: GABAPENTIN
     Indication: INTENSIVE CARE UNIT ACQUIRED WEAKNESS
     Route: 065
  3. NEXIUM [Concomitant]
     Active Substance: ESOMEPRAZOLE MAGNESIUM
     Indication: PROPHYLAXIS AGAINST GASTROINTESTINAL ULCER
     Route: 065
  4. VANCOMYCIN HIKMA [Suspect]
     Active Substance: VANCOMYCIN
     Indication: BACTERIAL TEST POSITIVE
     Route: 042
     Dates: start: 20170311, end: 20170319
  5. VANCOMYCIN HIKMA [Suspect]
     Active Substance: VANCOMYCIN
     Indication: PYREXIA
  6. CONCOR [Concomitant]
     Active Substance: BISOPROLOL FUMARATE
     Indication: CARDIAC FAILURE
     Route: 065
  7. CEFEPIME [Suspect]
     Active Substance: CEFEPIME HYDROCHLORIDE
     Indication: BACTERIAL TEST POSITIVE
     Route: 042
     Dates: start: 20170310, end: 20170319
  8. TORASEMID [Concomitant]
     Active Substance: TORSEMIDE
     Indication: POLYURIA
     Route: 065
  9. TRITTICO [Suspect]
     Active Substance: TRAZODONE HYDROCHLORIDE
     Indication: DEPRESSION
     Route: 065
     Dates: start: 20170308
  10. NOVALGIN [Concomitant]
     Active Substance: METAMIZOLE SODIUM
     Indication: PAIN
     Route: 065
     Dates: start: 20170308
  11. CEFEPIME [Suspect]
     Active Substance: CEFEPIME HYDROCHLORIDE
     Indication: PYREXIA
  12. THROMBO ASS [Concomitant]
     Active Substance: ASPIRIN
     Indication: CORONARY ARTERY DISEASE
     Route: 065
  13. NEUROMULTIVIT [Concomitant]
     Active Substance: CYANOCOBALAMIN\PYRIDOXINE\THIAMINE
     Indication: VITAMIN SUPPLEMENTATION
     Route: 065
  14. CEFEPIME [Suspect]
     Active Substance: CEFEPIME HYDROCHLORIDE
     Indication: C-REACTIVE PROTEIN INCREASED
  15. LOVENOX [Concomitant]
     Active Substance: ENOXAPARIN SODIUM
     Indication: ATRIAL FIBRILLATION
     Route: 065

REACTIONS (3)
  - Status epilepticus [Recovered/Resolved]
  - Drug interaction [Unknown]
  - Convulsive threshold lowered [Unknown]

NARRATIVE: CASE EVENT DATE: 20170320
